FAERS Safety Report 9786399 (Version 1)
Quarter: 2013Q4

REPORT INFORMATION
  Report Type: Spontaneous
  Country: DE (occurrence: None)
  Receive Date: 20131224
  Receipt Date: 20131224
  Transmission Date: 20140711
  Serious: Yes (Other)
  Sender: FDA-Public Use
  Company Number: 1312-1595

PATIENT
  Sex: Female

DRUGS (1)
  1. EYLEA [Suspect]

REACTIONS (4)
  - Retinal degeneration [None]
  - Visual acuity reduced [None]
  - Retinal disorder [None]
  - Retinal degeneration [None]
